FAERS Safety Report 6841661-7 (Version None)
Quarter: 2010Q3

REPORT INFORMATION
  Report Type: 
  Country: None (occurrence: None)
  Receive Date: 20100714
  Receipt Date: 20071023
  Transmission Date: 20110219
  Serious: No
  Sender: FDA-Public Use
  Company Number: US-PFIZER INC-2007057645

PATIENT
  Sex: Female
  Weight: 42.2 kg

DRUGS (10)
  1. CHANTIX [Suspect]
     Indication: SMOKING CESSATION THERAPY
     Dates: start: 20070707, end: 20070726
  2. TRAMADOL [Concomitant]
  3. COREG [Concomitant]
  4. FUROSEMIDE [Concomitant]
  5. SPIRIVA [Concomitant]
  6. OXYGEN [Concomitant]
  7. POTASSIUM CHLORIDE [Concomitant]
  8. ACETYLSALICYLIC ACID [Concomitant]
  9. VITAMINS [Concomitant]
  10. CALCIUM [Concomitant]

REACTIONS (8)
  - CARBON DIOXIDE [None]
  - DECREASED APPETITE [None]
  - HYPERSOMNIA [None]
  - INCORRECT DOSE ADMINISTERED [None]
  - LETHARGY [None]
  - OXYGEN SATURATION [None]
  - SOMNOLENCE [None]
  - WEIGHT DECREASED [None]
